FAERS Safety Report 5844198-7 (Version None)
Quarter: 2008Q3

REPORT INFORMATION
  Report Type: 
  Country: None (occurrence: None)
  Receive Date: 20080813
  Receipt Date: 20080801
  Transmission Date: 20090109
  Serious: Yes (Death)
  Sender: FDA-Public Use
  Company Number: FR-PFIZER INC-2008065070

PATIENT
  Age: 62 Year
  Sex: Female

DRUGS (6)
  1. REVATIO [Suspect]
     Indication: PULMONARY ARTERIAL HYPERTENSION
     Route: 048
  2. ALDACTONE [Suspect]
     Indication: PULMONARY ARTERIAL HYPERTENSION
  3. FLOLAN [Suspect]
     Dosage: TEXT:6 NG/KG/MIN
     Route: 042
     Dates: start: 20080711, end: 20080714
  4. TRACLEER [Suspect]
     Indication: PULMONARY ARTERIAL HYPERTENSION
     Route: 048
  5. FUROSEMIDE [Suspect]
     Indication: PULMONARY ARTERIAL HYPERTENSION
     Route: 048
  6. AMLOR [Concomitant]

REACTIONS (1)
  - SUDDEN DEATH [None]
